FAERS Safety Report 4945290-1 (Version None)
Quarter: 2006Q1

REPORT INFORMATION
  Report Type: 
  Country: None (occurrence: None)
  Receive Date: 20060119
  Receipt Date: 20051021
  Transmission Date: 20060701
  Serious: Yes (Hospitalization)
  Sender: FDA-Public Use
  Company Number: 05P-163-0303445-00

PATIENT
  Age: 68 Year
  Sex: Female
  Weight: 74.8435 kg

DRUGS (13)
  1. MERIDIA [Suspect]
     Indication: WEIGHT CONTROL
     Dosage: 15 MG, 1 IN 1 D, PER ORAL
     Route: 048
     Dates: start: 20050527
  2. INDOMETHACIN [Concomitant]
  3. FLUOXETINE HYDROCHLORIDE [Concomitant]
  4. ATENOLOL [Concomitant]
  5. ALLOPURINOL [Concomitant]
  6. BLOOD PRESSURE MEDICATION [Concomitant]
  7. AMLODIPINE BESYLATE [Concomitant]
  8. LORAZEPAM [Concomitant]
  9. LOTREL [Concomitant]
  10. POTASSIUM CHLORIDE [Concomitant]
  11. HYDROCHLOROTHIAZIDE [Concomitant]
  12. CLOPIDOGREL BISULFATE [Concomitant]
  13. PROPOXYPHENE NAPSYLATE AND ACETAMINOPHEN [Concomitant]

REACTIONS (21)
  - ADVERSE DRUG REACTION [None]
  - ANXIETY [None]
  - ASTHENIA [None]
  - BALANCE DISORDER [None]
  - CEREBROVASCULAR ACCIDENT [None]
  - CHOKING [None]
  - COLD SWEAT [None]
  - DIFFICULTY IN WALKING [None]
  - DRUG INEFFECTIVE [None]
  - DYSARTHRIA [None]
  - DYSPHAGIA [None]
  - DYSPHASIA [None]
  - FACIAL PARESIS [None]
  - FLUSHING [None]
  - HYPOAESTHESIA [None]
  - HYPOAESTHESIA FACIAL [None]
  - MALAISE [None]
  - MASTICATION DISORDER [None]
  - MENTAL STATUS CHANGES [None]
  - TRANSIENT ISCHAEMIC ATTACK [None]
  - VISUAL FIELD DEFECT [None]
